FAERS Safety Report 6047835-X (Version None)
Quarter: 2009Q1

REPORT INFORMATION
  Report Type: 
  Country: None (occurrence: None)
  Receive Date: 20090123
  Receipt Date: 20090113
  Transmission Date: 20090719
  Serious: Yes (Other)
  Sender: FDA-Public Use
  Company Number: BR-PFIZER INC-2008091891

PATIENT

DRUGS (1)
  1. CHAMPIX [Suspect]
     Indication: EX-TOBACCO USER
     Dosage: UNK
     Route: 048

REACTIONS (4)
  - DEPRESSION [None]
  - MONOPLEGIA [None]
  - TACHYCARDIA [None]
  - VISION BLURRED [None]
